FAERS Safety Report 23985078 (Version 1)
Quarter: 2024Q2

REPORT INFORMATION
  Report Type: Other
  Country: GB (occurrence: GB)
  Receive Date: 20240618
  Receipt Date: 20240618
  Transmission Date: 20240715
  Serious: Yes (Hospitalization, Other)
  Sender: FDA-Public Use
  Company Number: None

PATIENT
  Sex: Female

DRUGS (1)
  1. NAPROXEN [Suspect]
     Active Substance: NAPROXEN
     Indication: Osteoarthritis
     Dosage: 500 MILLIGRAM, BID (500MG BD)
     Route: 065

REACTIONS (1)
  - Anaphylactic reaction [Recovered/Resolved]
